FAERS Safety Report 6361151-8 (Version None)
Quarter: 2009Q3

REPORT INFORMATION
  Report Type: 
  Country: None (occurrence: None)
  Receive Date: 20090916
  Receipt Date: 20090916
  Transmission Date: 20100115
  Serious: Yes (Hospitalization)
  Sender: FDA-Public Use
  Company Number: None

PATIENT
  Age: 84 Year
  Sex: Male
  Weight: 64.4108 kg

DRUGS (1)
  1. TORSEMIDE [Suspect]
     Indication: FLUID RETENTION
     Dosage: ONE 100 MG DAILY
     Dates: start: 20090728, end: 20090801

REACTIONS (6)
  - ASTHENIA [None]
  - BACK PAIN [None]
  - DIZZINESS [None]
  - MUSCLE SPASMS [None]
  - SOMNOLENCE [None]
  - VOMITING [None]
